FAERS Safety Report 6792706-4 (Version None)
Quarter: 2010Q2

REPORT INFORMATION
  Report Type: 
  Country: None (occurrence: None)
  Receive Date: 20100624
  Receipt Date: 20081203
  Transmission Date: 20101027
  Serious: No
  Sender: FDA-Public Use
  Company Number: US-PFIZER INC-2008069860

PATIENT
  Sex: Female

DRUGS (3)
  1. XALATAN [Suspect]
     Indication: GLAUCOMA
  2. SYNTHROID [Concomitant]
     Indication: THYROID DISORDER
  3. ACETYLSALICYLIC ACID [Concomitant]

REACTIONS (5)
  - BALANCE DISORDER [None]
  - EMOTIONAL DISTRESS [None]
  - FALL [None]
  - PAIN [None]
  - RIB FRACTURE [None]
